FAERS Safety Report 9191712 (Version 1)
Quarter: 2013Q1

REPORT INFORMATION
  Report Type: Spontaneous
  Country: GB (occurrence: GB)
  Receive Date: 20130326
  Receipt Date: 20130326
  Transmission Date: 20140127
  Serious: Yes (Disabling, Other)
  Sender: FDA-Public Use
  Company Number: GB-B.I. PHARMACEUTICALS,INC./RIDGEFIELD-2013-UK-00424UK

PATIENT
  Age: 76 Year
  Sex: Female
  Weight: 48.54 kg

DRUGS (8)
  1. PRADAXA [Suspect]
     Dates: start: 20130206
  2. ANUSOL [Concomitant]
     Dates: start: 20130228, end: 20130304
  3. FOSTAIR [Concomitant]
     Dates: start: 20130206, end: 20130207
  4. FOSTAIR [Concomitant]
     Dates: start: 20121211, end: 20121212
  5. TRIMETHOPRIM [Concomitant]
     Dates: start: 20130228, end: 20130305
  6. UNIVER [Concomitant]
     Dates: start: 20130123
  7. WARFARIN SODIUM [Concomitant]
     Dates: start: 20130206, end: 20130207
  8. WARFARIN SODIUM [Concomitant]
     Dates: start: 20121214, end: 20121215

REACTIONS (2)
  - Haematuria [Not Recovered/Not Resolved]
  - Rash generalised [Not Recovered/Not Resolved]
